FAERS Safety Report 7231331-8 (Version None)
Quarter: 2011Q1

REPORT INFORMATION
  Report Type: 
  Country: None (occurrence: None)
  Receive Date: 20110118
  Receipt Date: 20101008
  Transmission Date: 20110831
  Serious: Yes (Other)
  Sender: FDA-Public Use
  Company Number: PHHY2010JP74271

PATIENT

DRUGS (1)
  1. FEMARA [Suspect]
     Indication: OVULATION INDUCTION

REACTIONS (2)
  - DRUG EXPOSURE BEFORE PREGNANCY [None]
  - CARDIAC SEPTAL DEFECT [None]
